FAERS Safety Report 4638565-7 (Version None)
Quarter: 2005Q2

REPORT INFORMATION
  Report Type: 
  Country: None (occurrence: None)
  Receive Date: 20050419
  Receipt Date: 20050406
  Transmission Date: 20051028
  Serious: Yes (Other)
  Sender: FDA-Public Use
  Company Number: US-JNJFOC-20050304583

PATIENT
  Sex: Female
  Weight: 68.95 kg

DRUGS (1)
  1. REMICADE [Suspect]
     Indication: CROHN'S DISEASE
     Route: 042

REACTIONS (3)
  - BLINDNESS TRANSIENT [None]
  - VISUAL FIELD DEFECT [None]
  - WEIGHT DECREASED [None]
